FAERS Safety Report 21589073 (Version 5)
Quarter: 2023Q4

REPORT INFORMATION
  Report Type: Spontaneous
  Country: US (occurrence: US)
  Receive Date: 20221114
  Receipt Date: 20231109
  Transmission Date: 20240109
  Serious: No
  Sender: FDA-Public Use
  Company Number: US-PHARMAESSENTIA CORPORATION-US-2022-PEC-000889

PATIENT
  Sex: Female

DRUGS (5)
  1. BESREMI [Suspect]
     Active Substance: ROPEGINTERFERON ALFA-2B-NJFT
     Indication: Polycythaemia vera
     Dosage: 100 MCG, Q2W
     Route: 058
     Dates: start: 20221006
  2. BESREMI [Suspect]
     Active Substance: ROPEGINTERFERON ALFA-2B-NJFT
     Dosage: 150 MCG, EVERY 3 WEEKS
     Route: 058
  3. BESREMI [Suspect]
     Active Substance: ROPEGINTERFERON ALFA-2B-NJFT
     Dosage: UNK, EVERY 3 WEEKS
     Route: 058
     Dates: start: 20221223
  4. BESREMI [Suspect]
     Active Substance: ROPEGINTERFERON ALFA-2B-NJFT
     Dosage: UNK
     Route: 058
     Dates: start: 202302
  5. BESREMI [Suspect]
     Active Substance: ROPEGINTERFERON ALFA-2B-NJFT
     Dosage: UNK
     Route: 065

REACTIONS (12)
  - Intentional product misuse [Unknown]
  - Feeling cold [Unknown]
  - Chills [Unknown]
  - Injection site photosensitivity reaction [Recovered/Resolved]
  - Dizziness [Unknown]
  - Fatigue [Not Recovered/Not Resolved]
  - Headache [Not Recovered/Not Resolved]
  - Arthralgia [Recovering/Resolving]
  - Injection site discolouration [Unknown]
  - Contusion [Unknown]
  - Nausea [Unknown]
  - Injection site erythema [Unknown]

NARRATIVE: CASE EVENT DATE: 20221001
